APPROVED DRUG PRODUCT: MEZLIN
Active Ingredient: MEZLOCILLIN SODIUM MONOHYDRATE
Strength: EQ 4GM BASE/VIAL
Dosage Form/Route: INJECTABLE;INJECTION
Application: A062697 | Product #002
Applicant: BAYER PHARMACEUTICALS CORP
Approved: Jan 22, 1987 | RLD: No | RS: No | Type: DISCN